FAERS Safety Report 19538738 (Version 1)
Quarter: 2021Q3

REPORT INFORMATION
  Report Type: Spontaneous
  Country: US (occurrence: US)
  Receive Date: 20210714
  Receipt Date: 20210714
  Transmission Date: 20211014
  Serious: No
  Sender: FDA-Public Use
  Company Number: US-CIPLA LTD.-2021US04456

PATIENT

DRUGS (5)
  1. EFAVIRENZ. [Suspect]
     Active Substance: EFAVIRENZ
     Indication: ANTIRETROVIRAL THERAPY
     Dosage: FIRST COURSE, 1 TOTAL DAILY DOSE FROM 0 WEEKS
     Route: 048
  2. ZIDOVUDINE. [Suspect]
     Active Substance: ZIDOVUDINE
     Indication: ANTIRETROVIRAL THERAPY
     Dosage: SECOND COURSE, AT 2 TOTAL DAILY DOSES
     Route: 042
     Dates: start: 2019
  3. LAMIVUDINE. [Suspect]
     Active Substance: LAMIVUDINE
     Indication: ANTIRETROVIRAL THERAPY
     Dosage: FIRST COURSE, 1 TOTAL DAILY DOSE FROM 0 WEEKS
     Route: 048
  4. ZIDOVUDINE. [Suspect]
     Active Substance: ZIDOVUDINE
     Indication: ANTIRETROVIRAL THERAPY
     Dosage: FIRST COURSE, 1 TOTAL DAILY DOSE FROM 0 WEEKS
     Route: 048
  5. ZIDOVUDINE. [Suspect]
     Active Substance: ZIDOVUDINE
     Dosage: THIRD COURSE, 1 TOTAL DAILY DOSE
     Route: 042
     Dates: start: 2019

REACTIONS (2)
  - Exposure during pregnancy [Unknown]
  - No adverse event [Unknown]
